FAERS Safety Report 5477728-8 (Version None)
Quarter: 2007Q4

REPORT INFORMATION
  Report Type: 
  Country: None (occurrence: None)
  Receive Date: 20071002
  Receipt Date: 20070921
  Transmission Date: 20080405
  Serious: Yes (Hospitalization)
  Sender: FDA-Public Use
  Company Number: GXKR2007DE07227

PATIENT
  Age: 13 Year
  Sex: Female
  Weight: 40 kg

DRUGS (2)
  1. PROMETHAZINE [Suspect]
     Indication: SUICIDE ATTEMPT
     Dosage: ORAL
     Route: 048
     Dates: start: 20070825, end: 20070825
  2. AMLODIPINE [Suspect]
     Indication: SUICIDE ATTEMPT
     Dosage: ORAL
     Route: 048
     Dates: start: 20070825, end: 20070825

REACTIONS (6)
  - AGGRESSION [None]
  - COORDINATION ABNORMAL [None]
  - DRUG TOXICITY [None]
  - DYSARTHRIA [None]
  - HALLUCINATIONS, MIXED [None]
  - SUICIDE ATTEMPT [None]
